FAERS Safety Report 4870874-9 (Version None)
Quarter: 2006Q1

REPORT INFORMATION
  Report Type: 
  Country: None (occurrence: None)
  Receive Date: 20060103
  Receipt Date: 20051221
  Transmission Date: 20060701
  Serious: Yes (Hospitalization, Disabling)
  Sender: FDA-Public Use
  Company Number: US-MERCK-0512USA03427

PATIENT
  Age: 40 Year
  Sex: Female

DRUGS (2)
  1. VIOXX [Suspect]
     Indication: ARTHRITIS
     Route: 048
     Dates: start: 19990101, end: 19991201
  2. NO THERAPY [Concomitant]
     Route: 065

REACTIONS (3)
  - BUNDLE BRANCH BLOCK RIGHT [None]
  - CARDIAC MURMUR [None]
  - MYOCARDIAL INFARCTION [None]
